FAERS Safety Report 25065276 (Version 1)
Quarter: 2025Q1

REPORT INFORMATION
  Report Type: Spontaneous
  Country: FR (occurrence: FR)
  Receive Date: 20250311
  Receipt Date: 20250311
  Transmission Date: 20250408
  Serious: Yes (Other)
  Sender: SANDOZ
  Company Number: None

PATIENT
  Age: 50 Year
  Sex: Male

DRUGS (13)
  1. BUSULFAN [Suspect]
     Active Substance: BUSULFAN
     Indication: Bone marrow conditioning regimen
     Route: 042
  2. CYCLOPHOSPHAMIDE [Suspect]
     Active Substance: CYCLOPHOSPHAMIDE
     Indication: Bone marrow conditioning regimen
     Route: 065
  3. CYCLOSPORINE [Suspect]
     Active Substance: CYCLOSPORINE
     Indication: Prophylaxis against graft versus host disease
     Route: 042
  4. ETOPOSIDE [Suspect]
     Active Substance: ETOPOSIDE
     Indication: Bone marrow conditioning regimen
     Route: 065
  5. FLUDARABINE [Suspect]
     Active Substance: FLUDARABINE PHOSPHATE
     Indication: Bone marrow conditioning regimen
     Route: 065
  6. FLUDARABINE [Suspect]
     Active Substance: FLUDARABINE PHOSPHATE
     Dosage: IV FLUDARABINE 30?MG/M2 DAILY FROM DAYS-5 TO -2
     Route: 042
  7. GRAFALON [Suspect]
     Active Substance: LAPINE T-LYMPHOCYTE IMMUNE GLOBULIN
     Indication: Bone marrow conditioning regimen
     Dosage: ANTITHYMOCYTE-GLOBULIN 10?MG/KG DAILY FOR 3?DAYSFROM DAY-3 TO -1,
     Route: 065
  8. GRAFALON [Suspect]
     Active Substance: LAPINE T-LYMPHOCYTE IMMUNE GLOBULIN
     Route: 065
  9. MYCOPHENOLATE MOFETIL [Suspect]
     Active Substance: MYCOPHENOLATE MOFETIL
     Indication: Prophylaxis against graft versus host disease
     Dosage: 30?MG/KG DAILY FROM DAY+1 TO +35
     Route: 042
  10. THIOTEPA [Suspect]
     Active Substance: THIOTEPA
     Indication: Bone marrow conditioning regimen
     Route: 065
  11. TREOSULFAN [Suspect]
     Active Substance: TREOSULFAN
     Indication: Bone marrow conditioning regimen
     Dosage: IV CYTARABINE/DAUNORUBICIN[VYXEOS] 29?MG/M2 DAILY ON DAY-14 AND -12
     Route: 042
  12. TREOSULFAN [Suspect]
     Active Substance: TREOSULFAN
     Route: 042
  13. VYXEOS [Suspect]
     Active Substance: CYTARABINE\DAUNORUBICIN
     Indication: Product used for unknown indication
     Dosage: ANTITHYMOCYTE-GLOBULIN 10?MG/KG DAILY FOR 3?DAYS FROM DAY-3 TO -1,
     Route: 065

REACTIONS (4)
  - Epstein-Barr virus infection [Recovered/Resolved]
  - Acute myeloid leukaemia [Recovered/Resolved]
  - Chronic graft versus host disease [Recovered/Resolved]
  - Drug ineffective [Recovered/Resolved]
